FAERS Safety Report 9543863 (Version 2)
Quarter: 2013Q3

REPORT INFORMATION
  Report Type: Spontaneous
  Country: GB (occurrence: GB)
  Receive Date: 20130923
  Receipt Date: 20130923
  Transmission Date: 20140515
  Serious: Yes (Death)
  Sender: FDA-Public Use
  Company Number: GB-009507513-1208GBR007671

PATIENT
  Age: 27 Year
  Sex: Male

DRUGS (1)
  1. DIPROPHOS [Suspect]

REACTIONS (2)
  - Lower respiratory tract infection [Fatal]
  - Loss of consciousness [Fatal]
